FAERS Safety Report 7268807-3 (Version None)
Quarter: 2011Q1

REPORT INFORMATION
  Report Type: 
  Country: None (occurrence: None)
  Receive Date: 20110201
  Receipt Date: 20110119
  Transmission Date: 20110831
  Serious: Yes (Other)
  Sender: FDA-Public Use
  Company Number: GB-MYLANLABS-2011S1001314

PATIENT
  Age: 60 Year

DRUGS (7)
  1. CETIRIZINE HCL [Suspect]
     Indication: PRODUCT USED FOR UNKNOWN INDICATION
  2. DOXAZOSIN [Suspect]
     Indication: PRODUCT USED FOR UNKNOWN INDICATION
  3. COLCHICINE [Suspect]
     Indication: PRODUCT USED FOR UNKNOWN INDICATION
  4. ALLOPURINOL [Suspect]
     Indication: PRODUCT USED FOR UNKNOWN INDICATION
  5. MIRTAZAPINE [Suspect]
     Indication: DEPRESSION
  6. VALSARTAN [Suspect]
     Indication: PRODUCT USED FOR UNKNOWN INDICATION
  7. METFORMIN HCL [Suspect]
     Indication: PRODUCT USED FOR UNKNOWN INDICATION

REACTIONS (1)
  - PANCREATITIS ACUTE [None]
